FAERS Safety Report 7565588-0 (Version None)
Quarter: 2011Q2

REPORT INFORMATION
  Report Type: 
  Country: None (occurrence: None)
  Receive Date: 20110615
  Receipt Date: 20110608
  Transmission Date: 20111010
  Serious: Yes (Hospitalization)
  Sender: FDA-Public Use
  Company Number: 2010SP060308

PATIENT
  Age: 29 Year
  Sex: Female

DRUGS (1)
  1. NUVARING [Suspect]
     Indication: CONTRACEPTION

REACTIONS (5)
  - ABDOMINAL PAIN UPPER [None]
  - ECZEMA [None]
  - DIARRHOEA [None]
  - PSYCHOSOMATIC DISEASE [None]
  - INTERVERTEBRAL DISC PROTRUSION [None]
